FAERS Safety Report 14968220 (Version 1)
Quarter: 2018Q2

REPORT INFORMATION
  Report Type: Spontaneous
  Country: US (occurrence: US)
  Receive Date: 20180604
  Receipt Date: 20180604
  Transmission Date: 20180711
  Serious: No
  Sender: FDA-Public Use
  Company Number: US-009507513-1805USA007836

PATIENT
  Age: 93 Year
  Sex: Female

DRUGS (1)
  1. ASMANEX [Suspect]
     Active Substance: MOMETASONE FUROATE
     Dosage: UNK; ROUTE OF ADMINISTRATION: ORAL INHALATION
     Route: 055

REACTIONS (2)
  - Hearing disability [Unknown]
  - Therapeutic response increased [Unknown]
